FAERS Safety Report 14539343 (Version 3)
Quarter: 2019Q4

REPORT INFORMATION
  Report Type: Report from Study
  Country: IN (occurrence: IN)
  Receive Date: 20180216
  Receipt Date: 20191031
  Transmission Date: 20200122
  Serious: Yes (Death, Other)
  Sender: FDA-Public Use
  Company Number: IN-ROCHE-2071543

PATIENT
  Age: 35 Year
  Sex: Male

DRUGS (1)
  1. AVASTIN [Suspect]
     Active Substance: BEVACIZUMAB
     Indication: COLORECTAL CANCER METASTATIC
     Route: 042
     Dates: start: 20170804

REACTIONS (5)
  - Limb injury [Unknown]
  - Death [Fatal]
  - Haemoglobin decreased [Unknown]
  - Loss of consciousness [Unknown]
  - Fall [Unknown]
